FAERS Safety Report 6430875-6 (Version None)
Quarter: 2009Q4

REPORT INFORMATION
  Report Type: 
  Country: None (occurrence: None)
  Receive Date: 20091106
  Receipt Date: 20091027
  Transmission Date: 20100525
  Serious: Yes (Other)
  Sender: FDA-Public Use
  Company Number: FR-PFIZER INC-2009288788

PATIENT
  Age: 87 Year
  Sex: Female

DRUGS (2)
  1. ALDACTONE [Suspect]
     Dosage: 12.5 MG, 1X/DAY
     Dates: end: 20091025
  2. TRIATEC [Concomitant]

REACTIONS (2)
  - AGRANULOCYTOSIS [None]
  - APLASIA [None]
